FAERS Safety Report 5523095-0 (Version None)
Quarter: 2007Q4

REPORT INFORMATION
  Report Type: 
  Country: None (occurrence: None)
  Receive Date: 20071119
  Receipt Date: 20071105
  Transmission Date: 20080405
  Serious: Yes (Death)
  Sender: FDA-Public Use
  Company Number: US021157

PATIENT
  Age: 40 Year
  Sex: Female

DRUGS (8)
  1. FENTORA [Suspect]
     Indication: BACK PAIN
     Dosage: 400 UG UP TO THREE DAILY PRN BUCCAL
     Route: 002
     Dates: start: 20070725
  2. FENTORA [Suspect]
     Indication: RADICULOPATHY
     Dosage: 400 UG UP TO THREE DAILY PRN BUCCAL
     Route: 002
     Dates: start: 20070725
  3. DURAGESIC-100 [Suspect]
     Indication: BACK PAIN
     Dosage: 50 UG ONE OR TWO PATCHES EVERY 72 HOURS
     Dates: start: 20060101, end: 20070101
  4. DURAGESIC-100 [Suspect]
     Indication: RADICULOPATHY
     Dosage: 50 UG ONE OR TWO PATCHES EVERY 72 HOURS
     Dates: start: 20060101, end: 20070101
  5. DURAGESIC-100 [Suspect]
     Indication: BACK PAIN
     Dosage: 25 UG Q72HR
     Dates: start: 20070701
  6. DURAGESIC-100 [Suspect]
     Indication: RADICULOPATHY
     Dosage: 25 UG Q72HR
     Dates: start: 20070701
  7. DURAGESIC-100 [Suspect]
     Indication: BACK PAIN
     Dosage: 50 UG Q72HR
  8. DURAGESIC-100 [Suspect]
     Indication: RADICULOPATHY
     Dosage: 50 UG Q72HR

REACTIONS (3)
  - ACCIDENTAL OVERDOSE [None]
  - ARTERIOSCLEROSIS [None]
  - DRUG TOXICITY [None]
